FAERS Safety Report 16116940 (Version 6)
Quarter: 2019Q3

REPORT INFORMATION
  Report Type: Spontaneous
  Country: US (occurrence: US)
  Receive Date: 20190326
  Receipt Date: 20190904
  Transmission Date: 20191004
  Serious: Yes (Other)
  Sender: FDA-Public Use
  Company Number: US-PFIZER INC-2019121396

PATIENT
  Age: 74 Year
  Sex: Female
  Weight: 79 kg

DRUGS (6)
  1. LYRICA [Suspect]
     Active Substance: PREGABALIN
     Dosage: 150 MG, ALTERNATE DAY (EVERY OTHER DAY)
     Route: 048
     Dates: start: 2019
  2. LIPITOR [Concomitant]
     Active Substance: ATORVASTATIN CALCIUM
     Dosage: 10 MG, UNK
     Dates: start: 2008
  3. ASPIRIN [ACETYLSALICYLIC ACID] [Concomitant]
     Active Substance: ASPIRIN
     Dosage: 80 MG, DAILY
     Dates: start: 2008
  4. FLUOXETINE [Concomitant]
     Active Substance: FLUOXETINE HYDROCHLORIDE
     Dosage: 20 MG, DAILY
     Dates: start: 2008
  5. PANTOPRAZOLE [Concomitant]
     Active Substance: PANTOPRAZOLE
     Dosage: 40 MG, DAILY
     Dates: start: 2005
  6. LYRICA [Suspect]
     Active Substance: PREGABALIN
     Indication: NEUROPATHY PERIPHERAL
     Dosage: 150 MG, 2X/DAY
     Route: 048
     Dates: start: 20190313, end: 2019

REACTIONS (10)
  - Drug intolerance [Unknown]
  - Pain in extremity [Unknown]
  - Irritability [Unknown]
  - Sleep disorder [Unknown]
  - Somnolence [Not Recovered/Not Resolved]
  - Fatigue [Unknown]
  - Product prescribing error [Unknown]
  - Hypersomnia [Not Recovered/Not Resolved]
  - Paraesthesia [Unknown]
  - Intentional product misuse [Unknown]

NARRATIVE: CASE EVENT DATE: 2019
